FAERS Safety Report 18379500 (Version 2)
Quarter: 2020Q4

REPORT INFORMATION
  Report Type: Other
  Country: JP (occurrence: JP)
  Receive Date: 20201014
  Receipt Date: 20201208
  Transmission Date: 20210114
  Serious: Yes (Other)
  Sender: FDA-Public Use
  Company Number: JP-ROCHE-2695062

PATIENT

DRUGS (5)
  1. BEVACIZUMAB. [Suspect]
     Active Substance: BEVACIZUMAB
     Dosage: MAINTENANCE THERAPY
     Route: 065
  2. CISPLATIN. [Suspect]
     Active Substance: CISPLATIN
     Indication: NON-SMALL CELL LUNG CANCER
     Route: 065
  3. PEMETREXED. [Suspect]
     Active Substance: PEMETREXED
     Dosage: MAINTENANCE THERAPY
     Route: 065
  4. BEVACIZUMAB. [Suspect]
     Active Substance: BEVACIZUMAB
     Indication: NON-SMALL CELL LUNG CANCER
     Route: 065
  5. PEMETREXED. [Suspect]
     Active Substance: PEMETREXED
     Indication: NON-SMALL CELL LUNG CANCER
     Route: 065

REACTIONS (19)
  - Haemoptysis [Unknown]
  - Thrombocytopenia [Unknown]
  - Hypertension [Unknown]
  - Epistaxis [Unknown]
  - Constipation [Unknown]
  - Fatigue [Unknown]
  - Colitis [Unknown]
  - Decreased appetite [Unknown]
  - Proteinuria [Unknown]
  - Alanine aminotransferase increased [Unknown]
  - Nausea [Unknown]
  - Diarrhoea [Unknown]
  - Neutropenia [Unknown]
  - Blood creatinine increased [Unknown]
  - Anaemia [Unknown]
  - Pulmonary embolism [Unknown]
  - Aspartate aminotransferase increased [Unknown]
  - Gastric ulcer [Unknown]
  - Vomiting [Unknown]
